FAERS Safety Report 5455087-4 (Version None)
Quarter: 2007Q3

REPORT INFORMATION
  Report Type: 
  Country: None (occurrence: None)
  Receive Date: 20070913
  Receipt Date: 20070907
  Transmission Date: 20080115
  Serious: Yes (Other)
  Sender: FDA-Public Use
  Company Number: LTI2007A00197

PATIENT
  Age: 69 Year
  Sex: Male

DRUGS (4)
  1. ACTOS [Suspect]
     Indication: INSULIN-REQUIRING TYPE II DIABETES MELLITUS
     Dosage: 30 MG (30 MG, 1 IN 1 D) ORAL
     Route: 048
     Dates: start: 20070515
  2. NOVOFORM (REPAGLINIDE) [Concomitant]
  3. LANTUS [Concomitant]
  4. METFORMIN HCL [Concomitant]

REACTIONS (4)
  - DIARRHOEA [None]
  - LACRIMATION INCREASED [None]
  - READING DISORDER [None]
  - VISION BLURRED [None]
